FAERS Safety Report 7312559-5 (Version None)
Quarter: 2011Q1

REPORT INFORMATION
  Report Type: 
  Country: None (occurrence: None)
  Receive Date: 20110224
  Receipt Date: 20110221
  Transmission Date: 20110831
  Serious: Yes (Other)
  Sender: FDA-Public Use
  Company Number: ES-AMGEN-ESPSP2011009281

PATIENT
  Age: 53 Year
  Sex: Female

DRUGS (1)
  1. NPLATE [Suspect]
     Indication: PRODUCT USED FOR UNKNOWN INDICATION
     Dosage: 100 A?G, QWK
     Dates: start: 20100401, end: 20110210

REACTIONS (5)
  - PLATELET COUNT INCREASED [None]
  - CONSTIPATION [None]
  - HYPOAESTHESIA [None]
  - BACK PAIN [None]
  - SYNOVIAL CYST [None]
